FAERS Safety Report 17534605 (Version 1)
Quarter: 2020Q1

REPORT INFORMATION
  Report Type: Spontaneous
  Country: IT (occurrence: IT)
  Receive Date: 20200312
  Receipt Date: 20200312
  Transmission Date: 20200409
  Serious: Yes (Other)
  Sender: FDA-Public Use
  Company Number: IT-MYLANLABS-2020M1026498

PATIENT
  Age: 49 Year
  Sex: Female

DRUGS (7)
  1. EPIRUBICIN [Suspect]
     Active Substance: EPIRUBICIN
     Indication: HER-2 POSITIVE BREAST CANCER
     Dosage: FOUR CYCLES ADMINISTERED WITH CYCLOPHOSPHAMIDE,,WITH AN INTER-CYCLE INTERVAL OF 21 DAYS
     Route: 065
  2. TRASTUZUMAB MYLAN [Suspect]
     Active Substance: TRASTUZUMAB
     Indication: HER-2 POSITIVE BREAST CANCER
     Dosage: FOR THE FIRST WEEK ADMINISTERED WITH PACLITAXEL
     Route: 065
  3. PACLITAXEL. [Concomitant]
     Active Substance: PACLITAXEL
     Indication: BREAST CANCER
     Dosage: ADMINISTERED WITH TRASTUZUMAB FOR SCHEDULED 24 CYCLES WITH AN INTER-CYCLE INTERVAL OF 21 DAYS
     Route: 065
  4. ENDOXAN                            /00021102/ [Suspect]
     Active Substance: CYCLOPHOSPHAMIDE
     Indication: HER-2 POSITIVE BREAST CANCER
     Dosage: WITH AN INTER-CYCLE INTERVAL OF 21 DAYS
     Route: 065
  5. CYCLOPHOSPHAMIDE. [Concomitant]
     Active Substance: CYCLOPHOSPHAMIDE
     Indication: BREAST CANCER
     Dosage: FOUR CYCLES ADMINISTERED WITH EPIRUBICIN, WITH AN INTER-CYCLE INTERVAL OF 21 DAYS
     Route: 065
  6. TRASTUZUMAB MYLAN [Suspect]
     Active Substance: TRASTUZUMAB
     Dosage: FOR SCHEDULED 11 CYCLES ADMINISTERED WITH PACLITAXEL, WITH AN INTER-CYCLE INTERVAL OF 21 DAYS
     Route: 065
  7. TRASTUZUMAB MYLAN [Suspect]
     Active Substance: TRASTUZUMAB
     Dosage: FOR SCHEDULED 13 CYCLES ADMINISTERED WITH PACLITAXEL, WITH AN INTER-CYCLE INTERVAL OF 21 DAYS
     Route: 065

REACTIONS (1)
  - Cardiac dysfunction [Recovering/Resolving]
